FAERS Safety Report 8829698 (Version 3)
Quarter: 2014Q3

REPORT INFORMATION
  Report Type: Report from Study
  Country: US (occurrence: US)
  Receive Date: 20121008
  Receipt Date: 20140917
  Transmission Date: 20150326
  Serious: Yes (Hospitalization)
  Sender: FDA-Public Use
  Company Number: US-ROCHE-1131102

PATIENT
  Sex: Male

DRUGS (5)
  1. CHLORAMBUCIL [Concomitant]
     Active Substance: CHLORAMBUCIL
  2. RITUXAN [Suspect]
     Active Substance: RITUXIMAB
     Indication: CHRONIC LYMPHOCYTIC LEUKAEMIA
     Route: 042
     Dates: start: 20001228
  3. PREDNISONE. [Concomitant]
     Active Substance: PREDNISONE
  4. RITUXAN [Suspect]
     Active Substance: RITUXIMAB
     Route: 042
  5. PROAMATINE [Concomitant]
     Active Substance: MIDODRINE HYDROCHLORIDE

REACTIONS (18)
  - Intraocular pressure increased [Unknown]
  - Haemolysis [Unknown]
  - Arthritis [Unknown]
  - Decreased appetite [Unknown]
  - Fatigue [Unknown]
  - Abdominal pain upper [Unknown]
  - Asthenia [Unknown]
  - Nausea [Unknown]
  - Orthostatic hypotension [Unknown]
  - Epistaxis [Unknown]
  - Mucosal dryness [Unknown]
  - Pyrexia [Unknown]
  - Syncope [Unknown]
  - Haemoglobin decreased [Recovering/Resolving]
  - Pickwickian syndrome [Unknown]
  - Blood glucose increased [Unknown]
  - Oedema peripheral [Unknown]
  - Dizziness [Unknown]
